FAERS Safety Report 21132269 (Version 2)
Quarter: 2022Q3

REPORT INFORMATION
  Report Type: Spontaneous
  Country: IT (occurrence: IT)
  Receive Date: 20220726
  Receipt Date: 20220927
  Transmission Date: 20221027
  Serious: Yes (Other)
  Sender: FDA-Public Use
  Company Number: None

PATIENT
  Age: 44 Year
  Sex: Female

DRUGS (5)
  1. ETANERCEPT [Suspect]
     Active Substance: ETANERCEPT
     Indication: Seronegative arthritis
     Route: 058
     Dates: start: 20211007, end: 20220502
  2. PLAQUENIL [Concomitant]
     Active Substance: HYDROXYCHLOROQUINE SULFATE
     Indication: Arthritis
     Dosage: UNKNOWN, 200MG PLUS 100MG DIE
     Route: 065
  3. FOLINA [Concomitant]
     Indication: Product used for unknown indication
     Dosage: UNKNOWN, 1 CP PER WEEK
     Route: 065
  4. METHOTREXATE [Concomitant]
     Active Substance: METHOTREXATE
     Indication: Arthritis
     Route: 065
     Dates: start: 20200606, end: 20220613
  5. NEODIDRO [Concomitant]
     Indication: Vitamin D deficiency
     Route: 065
     Dates: start: 20220502, end: 20220613

REACTIONS (4)
  - Arthritis [Not Recovered/Not Resolved]
  - Inflammation [Not Recovered/Not Resolved]
  - Condition aggravated [Not Recovered/Not Resolved]
  - Product use in unapproved indication [Unknown]

NARRATIVE: CASE EVENT DATE: 20220314
